FAERS Safety Report 5037564-3 (Version None)
Quarter: 2006Q2

REPORT INFORMATION
  Report Type: 
  Country: None (occurrence: None)
  Receive Date: 20060628
  Receipt Date: 20060622
  Transmission Date: 20061013
  Serious: Yes (Other)
  Sender: FDA-Public Use
  Company Number: US-GLAXOSMITHKLINE-A0610377A

PATIENT
  Age: 53 Year
  Sex: Female

DRUGS (8)
  1. WELLBUTRIN XL [Suspect]
     Indication: DEPRESSION
     Dosage: 450MG PER DAY
  2. GUAIFENESIN [Concomitant]
  3. SYNTHROID [Concomitant]
  4. ALLERGY SHOTS [Concomitant]
  5. CYMBALTA [Concomitant]
     Dosage: 60MG PER DAY
  6. ESTROGENS SOL/INJ [Concomitant]
  7. PROVIGIL [Concomitant]
  8. LUNESTA [Concomitant]

REACTIONS (4)
  - DISTURBANCE IN ATTENTION [None]
  - DRUG EFFECT DECREASED [None]
  - SUICIDE ATTEMPT [None]
  - THINKING ABNORMAL [None]
